FAERS Safety Report 8016081-2 (Version None)
Quarter: 2011Q4

REPORT INFORMATION
  Report Type: 
  Country: None (occurrence: None)
  Receive Date: 20111223
  Receipt Date: 20111219
  Transmission Date: 20120403
  Serious: Yes (Hospitalization)
  Sender: FDA-Public Use
  Company Number: AUR-APL-2011-06200

PATIENT
  Age: 32 Year
  Sex: Male
  Weight: 61 kg

DRUGS (16)
  1. CHLORHEXIDINE GLUCONATE [Concomitant]
  2. MAGNESIUM SULPHATE (MAGNESIUM SULPHATE) [Concomitant]
  3. SENNA-MINT WAF [Concomitant]
  4. DOCUSATE (DOCUSATE) [Concomitant]
  5. FUROSEMIDE [Concomitant]
  6. OMEPRAZOLE [Concomitant]
  7. PROPOFOL [Concomitant]
  8. MAGNESIUM (MAGNESIUM) [Concomitant]
  9. METOCLOPRAMIDE [Concomitant]
  10. ALFENTANIL (ALFETANIL) [Concomitant]
  11. PRONTODERM (BETAINE CITRATE) [Concomitant]
  12. VALPROATE SODIUM [Suspect]
     Indication: PRODUCT USED FOR UNKNOWN INDICATION
     Dosage: 600 MG (300 MG, 2 IN 1 D, INTRAVENOUS
     Route: 042
     Dates: start: 20111031, end: 20111103
  13. VANCOMYCIN [Suspect]
     Indication: PRODUCT USED FOR UNKNOWN INDICATION
     Dosage: 2000 MG (1000 MG, 2 IN 1 D), INTRAVENOUS
     Route: 042
     Dates: start: 20111101, end: 20111107
  14. LEVETIRACETAM [Suspect]
     Indication: CONVULSION
     Dosage: 500 MG 9250 MG, 2 IN 1 D)
     Dates: start: 20111103, end: 20111103
  15. MIDAZOLAM HCL [Concomitant]
  16. PABRINEX (PARENTROVITE) [Concomitant]

REACTIONS (3)
  - HEPATITIS [None]
  - DRUG RASH WITH EOSINOPHILIA AND SYSTEMIC SYMPTOMS [None]
  - TUBULOINTERSTITIAL NEPHRITIS [None]
